FAERS Safety Report 19931472 (Version 6)
Quarter: 2022Q2

REPORT INFORMATION
  Report Type: Spontaneous
  Country: US (occurrence: US)
  Receive Date: 20211007
  Receipt Date: 20220421
  Transmission Date: 20220720
  Serious: Yes (Life-Threatening, Other)
  Sender: FDA-Public Use
  Company Number: US-PFIZER INC-202101275173

PATIENT
  Age: 78 Year
  Sex: Male

DRUGS (4)
  1. BRAFTOVI [Suspect]
     Active Substance: ENCORAFENIB
     Indication: Colorectal cancer
     Dosage: 75 MG, 4X/DAY (4 TIMES A DAY EVERY 4 HOURS)
  2. BRAFTOVI [Suspect]
     Active Substance: ENCORAFENIB
     Dosage: 300 MG, DAILY (4 CAPSULES, 75 MG EACH DAILY)
  3. VALSARTAN [Concomitant]
     Active Substance: VALSARTAN
     Dosage: UNK
  4. ATORVASTATIN [Concomitant]
     Active Substance: ATORVASTATIN
     Indication: Blood pressure measurement
     Dosage: UNK

REACTIONS (5)
  - Mental impairment [Unknown]
  - Memory impairment [Not Recovered/Not Resolved]
  - Neoplasm progression [Unknown]
  - Hypoacusis [Unknown]
  - Off label use [Unknown]
